FAERS Safety Report 15762578 (Version 2)
Quarter: 2019Q1

REPORT INFORMATION
  Report Type: Report from Study
  Country: US (occurrence: US)
  Receive Date: 20181226
  Receipt Date: 20190104
  Transmission Date: 20190417
  Serious: No
  Sender: FDA-Public Use
  Company Number: PHEH2018US054423

PATIENT
  Sex: Female

DRUGS (1)
  1. GILENYA [Suspect]
     Active Substance: FINGOLIMOD HYDROCHLORIDE
     Indication: MULTIPLE SCLEROSIS
     Dosage: 0.5 MG, QD
     Route: 048
     Dates: start: 2016

REACTIONS (6)
  - Anxiety [Unknown]
  - Hypoacusis [Unknown]
  - Depression [Unknown]
  - Emotional disorder [Unknown]
  - Psychiatric symptom [Unknown]
  - Abnormal behaviour [Unknown]
